FAERS Safety Report 4908801-8 (Version None)
Quarter: 2006Q1

REPORT INFORMATION
  Report Type: 
  Country: None (occurrence: None)
  Receive Date: 20060210
  Receipt Date: 20051128
  Transmission Date: 20060701
  Serious: No
  Sender: FDA-Public Use
  Company Number: US-GLAXOSMITHKLINE-A0583680A

PATIENT
  Age: 42 Year
  Sex: Male

DRUGS (5)
  1. PAXIL CR [Suspect]
     Indication: DEPRESSION
     Dosage: 25MG TWICE PER DAY
     Route: 048
  2. BUSPIRONE [Concomitant]
  3. ABILIFY [Concomitant]
  4. AMBIEN [Concomitant]
  5. GEODON [Concomitant]

REACTIONS (3)
  - ASTHENIA [None]
  - GASTROINTESTINAL MOTILITY DISORDER [None]
  - HEADACHE [None]
